FAERS Safety Report 19483895 (Version 2)
Quarter: 2021Q3

REPORT INFORMATION
  Report Type: Spontaneous
  Country: US (occurrence: US)
  Receive Date: 20210701
  Receipt Date: 20210826
  Transmission Date: 20211014
  Serious: Yes (Death, Hospitalization)
  Sender: FDA-Public Use
  Company Number: US-TEVA-2021-US-1927367

PATIENT
  Age: 40 Year
  Sex: Female

DRUGS (10)
  1. ALTEPLASE. [Concomitant]
     Active Substance: ALTEPLASE
     Indication: CORONARY ARTERY OCCLUSION
     Route: 022
  2. NITROPRUSSIDE [Suspect]
     Active Substance: NITROPRUSSIDE
     Indication: ACUTE MYOCARDIAL INFARCTION
     Route: 022
  3. EPTIFIBATIDE. [Suspect]
     Active Substance: EPTIFIBATIDE
     Indication: ACUTE MYOCARDIAL INFARCTION
     Route: 022
  4. ASPIRIN. [Concomitant]
     Active Substance: ASPIRIN
     Indication: ANTIPLATELET THERAPY
     Route: 065
  5. ALTEPLASE. [Concomitant]
     Active Substance: ALTEPLASE
     Indication: CORONARY ARTERY OCCLUSION
     Dosage: ADMINISTERED VIA CATHETER
     Route: 065
  6. HEPARIN [Concomitant]
     Active Substance: HEPARIN SODIUM
     Indication: ANTICOAGULANT THERAPY
     Route: 065
  7. NOREPINEPHRINE. [Suspect]
     Active Substance: NOREPINEPHRINE
     Indication: CARDIOGENIC SHOCK
     Route: 065
  8. EPINEPHRINE. [Suspect]
     Active Substance: EPINEPHRINE
     Indication: ACUTE MYOCARDIAL INFARCTION
     Route: 022
  9. CLOPIDOGREL [Concomitant]
     Active Substance: CLOPIDOGREL BISULFATE
     Indication: ANTIPLATELET THERAPY
     Route: 048
  10. BIVALIRUDIN. [Concomitant]
     Active Substance: BIVALIRUDIN
     Indication: CORONARY ARTERY OCCLUSION
     Route: 042

REACTIONS (1)
  - Drug ineffective [Fatal]
